FAERS Safety Report 13584444 (Version 3)
Quarter: 2017Q3

REPORT INFORMATION
  Report Type: Report from Study
  Country: CN (occurrence: CN)
  Receive Date: 20170526
  Receipt Date: 20170904
  Transmission Date: 20171127
  Serious: Yes (Hospitalization)
  Sender: FDA-Public Use
  Company Number: CN-ROCHE-1938048

PATIENT
  Age: 66 Year
  Sex: Male
  Weight: 75 kg

DRUGS (10)
  1. RESERPINE. [Concomitant]
     Active Substance: RESERPINE
     Indication: HYPERTENSION
     Route: 065
     Dates: start: 2014
  2. HYDROCHLOROTHIAZIDE. [Concomitant]
     Active Substance: HYDROCHLOROTHIAZIDE
     Indication: HYPERTENSION
     Route: 065
     Dates: start: 2014
  3. TRIAMTERENE. [Concomitant]
     Active Substance: TRIAMTERENE
     Indication: HYPERTENSION
     Route: 065
     Dates: start: 2014
  4. ATEZOLIZUMAB. [Suspect]
     Active Substance: ATEZOLIZUMAB
     Indication: NON-SMALL CELL LUNG CANCER
     Dosage: DATE OF MOST RECENT DOSE PRIOR TO ADVERSE EVENT ONSET: 28/APR/2017
     Route: 042
     Dates: start: 20160816
  5. HYDRAZINE SULFATE [Concomitant]
     Active Substance: HYDRAZINE SULFATE
     Indication: HYPERTENSION
     Route: 065
     Dates: start: 2014
  6. VALSARTAN. [Concomitant]
     Active Substance: VALSARTAN
     Indication: HYPERTENSION
     Route: 065
     Dates: start: 20170203, end: 20170427
  7. VALSARTAN. [Concomitant]
     Active Substance: VALSARTAN
     Route: 065
     Dates: start: 20170424
  8. REPAGLINIDE. [Concomitant]
     Active Substance: REPAGLINIDE
     Indication: DIABETES MELLITUS
     Route: 065
     Dates: start: 20161019
  9. AMBROXOL [Concomitant]
     Active Substance: AMBROXOL
     Indication: COUGH
     Route: 065
     Dates: start: 20170315
  10. AMLODIPINE [Concomitant]
     Active Substance: AMLODIPINE BESYLATE
     Indication: HYPERTENSION
     Route: 065
     Dates: start: 20170424

REACTIONS (1)
  - Blood creatine phosphokinase MM increased [Not Recovered/Not Resolved]

NARRATIVE: CASE EVENT DATE: 20170518
